FAERS Safety Report 12789961 (Version 8)
Quarter: 2017Q2

REPORT INFORMATION
  Report Type: Spontaneous
  Country: US (occurrence: US)
  Receive Date: 20160928
  Receipt Date: 20170515
  Transmission Date: 20170830
  Serious: Yes (Other)
  Sender: FDA-Public Use
  Company Number: US-PFIZER INC-2016442905

PATIENT
  Age: 81 Year
  Sex: Female
  Weight: 53.61 kg

DRUGS (3)
  1. EXEMESTANE. [Suspect]
     Active Substance: EXEMESTANE
     Dosage: UNK
  2. IBRANCE [Suspect]
     Active Substance: PALBOCICLIB
     Indication: BREAST CANCER METASTATIC
     Dosage: 125 MG, CYCLIC (125MG TAKES 1 ONCE A DAY FOR 21 DAYS AND OFF FOR 7 DAYS)
     Dates: start: 20160916
  3. LETROZOLE. [Suspect]
     Active Substance: LETROZOLE
     Dosage: UNK

REACTIONS (8)
  - Memory impairment [Not Recovered/Not Resolved]
  - Oral pain [Recovered/Resolved]
  - Fall [Unknown]
  - Lip injury [Unknown]
  - Face injury [Unknown]
  - Spinal fracture [Unknown]
  - Cerebrovascular accident [Unknown]
  - Pain in extremity [Recovered/Resolved]

NARRATIVE: CASE EVENT DATE: 201704
